FAERS Safety Report 10818952 (Version 1)
Quarter: 2015Q1

REPORT INFORMATION
  Report Type: Report from Study
  Country: US (occurrence: US)
  Receive Date: 20150218
  Receipt Date: 20150218
  Transmission Date: 20150721
  Serious: No
  Sender: FDA-Public Use
  Company Number: US-ABBVIE-14K-163-1293492-00

PATIENT
  Age: 67 Year
  Sex: Female

DRUGS (8)
  1. DILAUDID [Concomitant]
     Active Substance: HYDROMORPHONE HYDROCHLORIDE
     Indication: BACK PAIN
     Dosage: ONE-TWO A DAY
  2. HYOSCYAMINE [Concomitant]
     Active Substance: HYOSCYAMINE
     Indication: PAIN
  3. BENTYL [Concomitant]
     Active Substance: DICYCLOMINE HYDROCHLORIDE
     Indication: PRODUCT USED FOR UNKNOWN INDICATION
     Dates: end: 20141002
  4. UNKNOWN MEDICATIONS [Concomitant]
     Active Substance: UNSPECIFIED INGREDIENT
     Indication: PRODUCT USED FOR UNKNOWN INDICATION
  5. HUMIRA [Suspect]
     Active Substance: ADALIMUMAB
     Indication: CROHN^S DISEASE
     Dosage: LOADING DOSE
     Route: 065
     Dates: start: 20140929, end: 20140929
  6. PREDNISONE. [Concomitant]
     Active Substance: PREDNISONE
     Dosage: ON A TAPERING DOSE CURRENTLY AT 10 MILLIGRAM FOR THE NEXT SIX DAYS
  7. PREDNISONE. [Concomitant]
     Active Substance: PREDNISONE
     Indication: CROHN^S DISEASE
     Dosage: ON A TAPERING DOSE
  8. HUMIRA [Suspect]
     Active Substance: ADALIMUMAB
     Route: 065

REACTIONS (4)
  - Wrong technique in drug usage process [Unknown]
  - Injection site bruising [Recovering/Resolving]
  - Underdose [Unknown]
  - Injection site pain [Recovering/Resolving]

NARRATIVE: CASE EVENT DATE: 20140929
